FAERS Safety Report 20653027 (Version 2)
Quarter: 2022Q2

REPORT INFORMATION
  Report Type: Spontaneous
  Country: BR (occurrence: BR)
  Receive Date: 20220330
  Receipt Date: 20220406
  Transmission Date: 20220721
  Serious: Yes (Life-Threatening, Hospitalization, Other)
  Sender: FDA-Public Use
  Company Number: BR-MLMSERVICE-20220317-3439272-1

PATIENT
  Age: 55 Year
  Sex: Male

DRUGS (3)
  1. VORICONAZOLE [Suspect]
     Active Substance: VORICONAZOLE
     Indication: Aspergillus infection
     Dosage: 200MG/12H
     Route: 042
  2. VORICONAZOLE [Suspect]
     Active Substance: VORICONAZOLE
     Dosage: 200MG/12H
     Route: 048
  3. ITRACONAZOLE [Suspect]
     Active Substance: ITRACONAZOLE
     Indication: Aspergillus infection
     Dosage: 200MG/12H
     Route: 048

REACTIONS (8)
  - Pathogen resistance [Unknown]
  - Aspergillus infection [Recovered/Resolved]
  - Drug ineffective [Recovered/Resolved]
  - Renal abscess [Recovered/Resolved]
  - Pleural effusion [Recovered/Resolved]
  - Prostatic abscess [Recovered/Resolved]
  - Drug resistance [Unknown]
  - Bronchopulmonary aspergillosis [Recovered/Resolved]
